FAERS Safety Report 14957373 (Version 1)
Quarter: 2018Q2

REPORT INFORMATION
  Report Type: Spontaneous
  Country: US (occurrence: US)
  Receive Date: 20180531
  Receipt Date: 20180531
  Transmission Date: 20180711
  Serious: Yes (Other)
  Sender: FDA-Public Use
  Company Number: US-ROCHE-2130474

PATIENT
  Sex: Female
  Weight: 70 kg

DRUGS (2)
  1. PREDNISONE. [Concomitant]
     Active Substance: PREDNISONE
     Indication: PEMPHIGUS
     Dosage: DAILY; ONGOING: YES
     Route: 048
     Dates: start: 20180320
  2. RITUXAN [Suspect]
     Active Substance: RITUXIMAB
     Indication: PEMPHIGUS
     Dosage: FREQUENCY : ONE
     Route: 042
     Dates: start: 20180430, end: 20180430

REACTIONS (6)
  - Heart rate irregular [Recovered/Resolved]
  - Off label use [Unknown]
  - Chest pain [Recovered/Resolved]
  - Pharyngeal paraesthesia [Recovered/Resolved]
  - Tremor [Recovered/Resolved]
  - Intentional product use issue [Unknown]
